FAERS Safety Report 25298761 (Version 2)
Quarter: 2025Q3

REPORT INFORMATION
  Report Type: Report from Study
  Country: US (occurrence: US)
  Receive Date: 20250512
  Receipt Date: 20250711
  Transmission Date: 20251020
  Serious: Yes (Hospitalization)
  Sender: NOVARTIS
  Company Number: US-002147023-NVSC2025US007341

PATIENT
  Sex: Female

DRUGS (1)
  1. KESIMPTA [Suspect]
     Active Substance: OFATUMUMAB
     Indication: Product used for unknown indication
     Route: 065
     Dates: start: 20241219

REACTIONS (5)
  - Localised infection [Recovered/Resolved]
  - Fall [Unknown]
  - Back disorder [Unknown]
  - Inflammation [Unknown]
  - Arthralgia [Unknown]
